FAERS Safety Report 23193803 (Version 2)
Quarter: 2024Q1

REPORT INFORMATION
  Report Type: Report from Study
  Country: US (occurrence: US)
  Receive Date: 20231116
  Receipt Date: 20240124
  Transmission Date: 20240409
  Serious: Yes (Hospitalization)
  Sender: FDA-Public Use
  Company Number: US-ABBVIE-5493626

PATIENT
  Sex: Male

DRUGS (4)
  1. SKYRIZI [Suspect]
     Active Substance: RISANKIZUMAB-RZAA
     Indication: Psoriasis
     Route: 058
     Dates: start: 20200608
  2. SKYRIZI [Suspect]
     Active Substance: RISANKIZUMAB-RZAA
     Route: 058
     Dates: start: 20221213
  3. SULFUR [Suspect]
     Active Substance: SULFUR
     Indication: Product used for unknown indication
     Route: 065
  4. TORSEMIDE [Suspect]
     Active Substance: TORSEMIDE
     Indication: Product used for unknown indication
     Route: 065

REACTIONS (12)
  - COVID-19 [Unknown]
  - Bronchitis [Unknown]
  - Arthritis [Unknown]
  - Pneumonia [Unknown]
  - Rash pruritic [Unknown]
  - Drug hypersensitivity [Unknown]
  - Fluid retention [Unknown]
  - Dehydration [Unknown]
  - Diarrhoea [Unknown]
  - Weight decreased [Unknown]
  - Pruritus [Unknown]
  - Maculopathy [Unknown]
